FAERS Safety Report 5341467-4 (Version None)
Quarter: 2007Q2

REPORT INFORMATION
  Report Type: 
  Country: None (occurrence: None)
  Receive Date: 20070530
  Receipt Date: 20070530
  Transmission Date: 20071010
  Serious: Yes (Life-Threatening, Other)
  Sender: FDA-Public Use
  Company Number: None

PATIENT
  Sex: Female
  Weight: 106.1417 kg

DRUGS (1)
  1. VENOFER [Suspect]
     Indication: IRON DEFICIENCY ANAEMIA
     Dosage: 100MG 3 TIMES/WK EVERY WEEK IV
     Route: 042

REACTIONS (5)
  - ANXIETY [None]
  - BURNING SENSATION [None]
  - ERYTHEMA [None]
  - HYPOAESTHESIA [None]
  - RASH [None]
